FAERS Safety Report 26035240 (Version 1)
Quarter: 2025Q4

REPORT INFORMATION
  Report Type: Report from Study
  Country: US (occurrence: US)
  Receive Date: 20251112
  Receipt Date: 20251112
  Transmission Date: 20260119
  Serious: Yes (Hospitalization)
  Sender: ALNYLAM PHARMACEUTICALS
  Company Number: US-ALNYLAM PHARMACEUTICALS, INC.-ALN-2025-006271

PATIENT
  Age: 82 Year

DRUGS (1)
  1. AMVUTTRA [Suspect]
     Active Substance: VUTRISIRAN
     Indication: Acquired ATTR amyloidosis
     Dosage: UNK
     Route: 065

REACTIONS (5)
  - Pneumonia [Unknown]
  - Lethargy [Unknown]
  - Somnolence [Unknown]
  - Pre-existing condition improved [Unknown]
  - Dyspnoea [Unknown]
